FAERS Safety Report 4371522-7 (Version None)
Quarter: 2004Q2

REPORT INFORMATION
  Report Type: 
  Country: None (occurrence: None)
  Receive Date: 20040601
  Receipt Date: 20040225
  Transmission Date: 20050107
  Serious: No
  Sender: FDA-Public Use
  Company Number: 701508

PATIENT
  Age: 49 Year
  Sex: Female

DRUGS (2)
  1. AMEVIVE [Suspect]
     Indication: PSORIASIS
     Dosage: 15 MG QW IM
     Route: 030
     Dates: start: 20031113, end: 20040102
  2. AMEVIVE [Suspect]
     Indication: PSORIASIS
     Dosage: 15 MG IM
     Route: 030
     Dates: start: 20040122

REACTIONS (1)
  - HERPES ZOSTER [None]
